FAERS Safety Report 11079322 (Version 1)
Quarter: 2015Q2

REPORT INFORMATION
  Report Type: Spontaneous
  Country: CA (occurrence: CA)
  Receive Date: 20150430
  Receipt Date: 20150430
  Transmission Date: 20150821
  Serious: Yes (Death, Other)
  Sender: FDA-Public Use
  Company Number: CA-JNJFOC-20150421173

PATIENT
  Age: 82 Year
  Sex: Male

DRUGS (8)
  1. HALDOL [Suspect]
     Active Substance: HALOPERIDOL
     Indication: NAUSEA
     Dosage: ONCE AT 2330 HOURS
     Route: 058
     Dates: start: 20110930
  2. DILAUDID [Suspect]
     Active Substance: HYDROMORPHONE HYDROCHLORIDE
     Indication: PAIN
     Dosage: ONCE AT AT 1900 HOURS
     Route: 058
     Dates: start: 20111001
  3. ACETAMINOPHEN. [Suspect]
     Active Substance: ACETAMINOPHEN
     Route: 065
  4. HALDOL [Suspect]
     Active Substance: HALOPERIDOL
     Indication: NAUSEA
     Dosage: ONCE AT 0320 HOURS
     Route: 058
     Dates: start: 20111001
  5. HALDOL [Suspect]
     Active Substance: HALOPERIDOL
     Indication: AGITATION
     Dosage: ONCE AT 2330 HOURS
     Route: 058
     Dates: start: 20110930
  6. HALDOL [Suspect]
     Active Substance: HALOPERIDOL
     Indication: AGITATION
     Dosage: ONCE AT 0320 HOURS
     Route: 058
     Dates: start: 20111001
  7. ACETAMINOPHEN. [Suspect]
     Active Substance: ACETAMINOPHEN
     Indication: PRODUCT USED FOR UNKNOWN INDICATION
     Dosage: ONCE, ADMINISTERED AT 1930 HOURS
     Route: 065
     Dates: start: 20110930
  8. DILAUDID [Suspect]
     Active Substance: HYDROMORPHONE HYDROCHLORIDE
     Indication: PAIN
     Dosage: ONCE AT 0320 HOURS
     Route: 058
     Dates: start: 20111001

REACTIONS (9)
  - Anxiety [Unknown]
  - Confusional state [Unknown]
  - Disturbance in social behaviour [Unknown]
  - Agitation [Unknown]
  - Restlessness [Unknown]
  - Somnolence [Unknown]
  - Lethargy [Unknown]
  - Incorrect dose administered [Fatal]
  - Hypotension [Unknown]

NARRATIVE: CASE EVENT DATE: 20111001
